FAERS Safety Report 6695766-4 (Version None)
Quarter: 2010Q2

REPORT INFORMATION
  Report Type: 
  Country: None (occurrence: None)
  Receive Date: 20100426
  Receipt Date: 20100412
  Transmission Date: 20101027
  Serious: Yes (Other)
  Sender: FDA-Public Use
  Company Number: US-ASTRAZENECA-2009UW16433

PATIENT
  Age: 48 Year
  Sex: Female

DRUGS (4)
  1. SEROQUEL [Suspect]
     Dosage: 600-1500MG
     Route: 048
     Dates: start: 20020213
  2. NEURONTIN [Concomitant]
     Dates: start: 20090303
  3. WELLBUTRIN SR [Concomitant]
     Dosage: 200-300MG
     Dates: start: 20020110
  4. ZOLOFT [Concomitant]
     Dosage: 50MG, 3  QPM, 3 QAM
     Dates: start: 20030625

REACTIONS (3)
  - DIABETIC NEUROPATHY [None]
  - PARAESTHESIA [None]
  - TYPE 2 DIABETES MELLITUS [None]
